FAERS Safety Report 8936619 (Version 1)
Quarter: 2012Q4

REPORT INFORMATION
  Report Type: 
  Country: JP (occurrence: JP)
  Receive Date: 20121130
  Receipt Date: 20121130
  Transmission Date: 20130627
  Serious: Yes (Hospitalization)
  Sender: FDA-Public Use
  Company Number: JP-B.I. PHARMACEUTICALS,INC./RIDGEFIELD-2012-BI-01366GD

PATIENT
  Age: 81 Year
  Sex: Male

DRUGS (3)
  1. TELMISARTAN [Suspect]
     Route: 048
  2. SAIREI-TO [Suspect]
     Route: 048
  3. ALLOPURINOL [Suspect]
     Route: 048

REACTIONS (3)
  - Pneumonia [Recovered/Resolved]
  - Cough [Recovered/Resolved]
  - Pyrexia [Recovered/Resolved]
